FAERS Safety Report 6841449-7 (Version None)
Quarter: 2010Q3

REPORT INFORMATION
  Report Type: 
  Country: None (occurrence: None)
  Receive Date: 20100714
  Receipt Date: 20070703
  Transmission Date: 20110219
  Serious: No
  Sender: FDA-Public Use
  Company Number: US-PFIZER INC-2007056648

PATIENT
  Sex: Male
  Weight: 85 kg

DRUGS (14)
  1. CHANTIX [Suspect]
     Indication: SMOKING CESSATION THERAPY
     Dates: start: 20070101, end: 20070101
  2. METOPROLOL [Concomitant]
  3. FLEXERIL [Concomitant]
  4. LORAZEPAM [Concomitant]
  5. BENICAR [Concomitant]
  6. VYTORIN [Concomitant]
     Dosage: 10/80
  7. ASPIRIN [Concomitant]
  8. PREVACID [Concomitant]
  9. FLURAZEPAM [Concomitant]
  10. TRICOR [Concomitant]
  11. WELCHOL [Concomitant]
  12. BOTOX [Concomitant]
     Indication: MUSCLE SPASMS
  13. SOMA [Concomitant]
  14. METHOCARBAMOL [Concomitant]

REACTIONS (4)
  - ABNORMAL DREAMS [None]
  - ARTHRALGIA [None]
  - EYE PAIN [None]
  - INCORRECT DOSE ADMINISTERED [None]
